FAERS Safety Report 7087183-2 (Version None)
Quarter: 2010Q4

REPORT INFORMATION
  Report Type: 
  Country: None (occurrence: None)
  Receive Date: 20101106
  Receipt Date: 20101101
  Transmission Date: 20110411
  Serious: No
  Sender: FDA-Public Use
  Company Number: US-WYE-H18500410

PATIENT

DRUGS (1)
  1. TORISEL [Suspect]
     Indication: RENAL CELL CARCINOMA
     Dosage: NOT SPECIFIED

REACTIONS (1)
  - EYE HAEMORRHAGE [None]
